FAERS Safety Report 4556500-7 (Version None)
Quarter: 2005Q1

REPORT INFORMATION
  Report Type: 
  Country: None (occurrence: None)
  Receive Date: 20050114
  Receipt Date: 20050104
  Transmission Date: 20050727
  Serious: Yes (Hospitalization)
  Sender: FDA-Public Use
  Company Number: US-2004-030944

PATIENT
  Age: 56 Year
  Sex: Female

DRUGS (13)
  1. BETASERON [Suspect]
     Indication: SECONDARY PROGRESSIVE MULTIPLE SCLEROSIS
     Dosage: SUBCUTANEOUS
     Route: 058
     Dates: start: 19961001
  2. XALATAN [Concomitant]
  3. LEVOTHYROXINE SODIUM [Concomitant]
  4. ATENOLOL [Concomitant]
  5. LIPITOR [Concomitant]
  6. FOLIC ACID [Concomitant]
  7. VITAMIN E [Concomitant]
  8. VITAMIN D [Concomitant]
  9. ASPIRIN [Concomitant]
  10. STOOL SOFTENER (DOCUSATE SODIUM) [Concomitant]
  11. VITAMIN C [Concomitant]
  12. MAGNESIUM (MAGNESIUM) [Concomitant]
  13. MULTIPLE VITAMINS (RETINOL) [Concomitant]

REACTIONS (9)
  - BIOPSY SITE UNSPECIFIED ABNORMAL [None]
  - CELLULITIS [None]
  - DRUG HYPERSENSITIVITY [None]
  - NEOPLASM [None]
  - NORMOCHROMIC NORMOCYTIC ANAEMIA [None]
  - OEDEMA PERIPHERAL [None]
  - PANNICULITIS [None]
  - PSYCHOTIC DISORDER [None]
  - WOUND DRAINAGE [None]
